FAERS Safety Report 25961844 (Version 1)
Quarter: 2025Q4

REPORT INFORMATION
  Report Type: Spontaneous
  Country: KR (occurrence: KR)
  Receive Date: 20251027
  Receipt Date: 20251027
  Transmission Date: 20260118
  Serious: Yes (Other)
  Sender: ACCORD
  Company Number: KR-Accord-509953

PATIENT
  Age: 73 Year
  Sex: Male

DRUGS (2)
  1. CISPLATIN [Suspect]
     Active Substance: CISPLATIN
     Indication: Gastric cancer stage IV
     Dosage: 3 CYCLICAL
  2. PACLITAXEL [Suspect]
     Active Substance: PACLITAXEL
     Indication: Gastric cancer stage IV
     Dosage: 3 CYCLICAL

REACTIONS (2)
  - Pulmonary tuberculosis [Recovered/Resolved]
  - Neutrophilia [Recovered/Resolved]
